FAERS Safety Report 9288673 (Version 2)
Quarter: 2013Q4

REPORT INFORMATION
  Report Type: Spontaneous
  Country: JP (occurrence: JP)
  Receive Date: 20130514
  Receipt Date: 20131009
  Transmission Date: 20140711
  Serious: Yes (Other)
  Sender: FDA-Public Use
  Company Number: JP-009507513-1305JPN008288

PATIENT
  Age: 30 Year
  Sex: Female

DRUGS (1)
  1. GASTER [Suspect]
     Route: 048

REACTIONS (1)
  - Syncope [Unknown]
